FAERS Safety Report 24943901 (Version 3)
Quarter: 2025Q2

REPORT INFORMATION
  Report Type: Spontaneous
  Country: US (occurrence: US)
  Receive Date: 20250207
  Receipt Date: 20250501
  Transmission Date: 20250717
  Serious: No
  Sender: PFIZER
  Company Number: US-PFIZER INC-202500027550

PATIENT
  Age: 61 Year
  Sex: Female

DRUGS (12)
  1. IBRANCE [Suspect]
     Active Substance: PALBOCICLIB
     Route: 048
     Dates: start: 20241231
  2. GABAPENTIN [Concomitant]
     Active Substance: GABAPENTIN
  3. MOUNJARO [Concomitant]
     Active Substance: TIRZEPATIDE
  4. ACETAMINOPHEN\OXYCODONE HYDROCHLORIDE [Concomitant]
     Active Substance: ACETAMINOPHEN\OXYCODONE HYDROCHLORIDE
  5. HYDROCODONE BITARTRATE AND ACETAMINOPHEN [Concomitant]
     Active Substance: ACETAMINOPHEN\HYDROCODONE BITARTRATE
  6. MAGNESIUM OXIDE [Concomitant]
     Active Substance: MAGNESIUM OXIDE
  7. ATORVASTATIN [Concomitant]
     Active Substance: ATORVASTATIN
  8. DULOXETINE [Concomitant]
     Active Substance: DULOXETINE
  9. RECLAST [Concomitant]
     Active Substance: ZOLEDRONIC ACID
  10. ANASTROZOLE [Concomitant]
     Active Substance: ANASTROZOLE
  11. PROLIA [Concomitant]
     Active Substance: DENOSUMAB
  12. LETROZOLE [Concomitant]
     Active Substance: LETROZOLE

REACTIONS (5)
  - Angiopathy [Unknown]
  - Pain in extremity [Unknown]
  - Fatigue [Unknown]
  - Asthenia [Unknown]
  - Product dose omission issue [Unknown]
